FAERS Safety Report 10236766 (Version 1)
Quarter: 2014Q2

REPORT INFORMATION
  Report Type: Spontaneous
  Country: JP (occurrence: JP)
  Receive Date: 20140613
  Receipt Date: 20140613
  Transmission Date: 20141212
  Serious: Yes (Other)
  Sender: FDA-Public Use
  Company Number: JP-VIIV HEALTHCARE LIMITED-B1002753A

PATIENT
  Sex: Male

DRUGS (6)
  1. EPIVIR [Suspect]
     Indication: PRODUCT USED FOR UNKNOWN INDICATION
     Route: 048
  2. EPZICOM [Suspect]
     Indication: PRODUCT USED FOR UNKNOWN INDICATION
     Route: 048
  3. REYATAZ [Suspect]
     Indication: PRODUCT USED FOR UNKNOWN INDICATION
     Route: 048
  4. PREZISTA [Concomitant]
     Route: 048
  5. NORVIR [Concomitant]
     Route: 048
  6. VIREAD [Concomitant]
     Route: 048

REACTIONS (1)
  - Nephrolithiasis [Unknown]
